FAERS Safety Report 5067111-1 (Version None)
Quarter: 2006Q3

REPORT INFORMATION
  Report Type: 
  Country: None (occurrence: None)
  Receive Date: 20060727
  Receipt Date: 20060714
  Transmission Date: 20061208
  Serious: Yes (Other)
  Sender: FDA-Public Use
  Company Number: 227587

PATIENT
  Sex: 0

DRUGS (2)
  1. AVASTIN [Suspect]
     Indication: CHOROIDAL NEOVASCULARISATION
     Dosage: 1.25 MG 1/MONTH INTRAVITREAL
  2. ANTIBIOTIC (ANTIBIOTICS NOS) [Concomitant]

REACTIONS (1)
  - VITRITIS [None]
